FAERS Safety Report 20699873 (Version 2)
Quarter: 2022Q2

REPORT INFORMATION
  Report Type: Spontaneous
  Country: MA (occurrence: MA)
  Receive Date: 20220412
  Receipt Date: 20220419
  Transmission Date: 20220720
  Serious: Yes (Life-Threatening, Other)
  Sender: FDA-Public Use
  Company Number: MA-PFIZER INC-202200507600

PATIENT
  Age: 49 Year
  Sex: Female

DRUGS (4)
  1. AZITHROMYCIN [Suspect]
     Active Substance: AZITHROMYCIN
     Indication: COVID-19
     Dosage: UNK
  2. AZITHROMYCIN [Suspect]
     Active Substance: AZITHROMYCIN
     Indication: Acute respiratory distress syndrome
  3. HYDROXYCHLOROQUINE [Suspect]
     Active Substance: HYDROXYCHLOROQUINE
     Indication: COVID-19
     Dosage: UNK
  4. HYDROXYCHLOROQUINE [Suspect]
     Active Substance: HYDROXYCHLOROQUINE
     Indication: Acute respiratory distress syndrome

REACTIONS (4)
  - Electrocardiogram QT prolonged [Unknown]
  - Cardiogenic shock [Unknown]
  - Cardio-respiratory arrest [Unknown]
  - Off label use [Unknown]
